FAERS Safety Report 7365420-4 (Version None)
Quarter: 2011Q1

REPORT INFORMATION
  Report Type: 
  Country: None (occurrence: None)
  Receive Date: 20110310
  Receipt Date: 20110302
  Transmission Date: 20110831
  Serious: Yes (Death)
  Sender: FDA-Public Use
  Company Number: JP-20110013

PATIENT

DRUGS (1)
  1. (LIPIODOL ULTRA FLUIDE) (ETHIODIZED OIL) [Suspect]
     Indication: THERAPEUTIC EMBOLISATION
     Dosage: INTRA-ARTERIAL
     Route: 013
     Dates: start: 20090601, end: 20090601

REACTIONS (7)
  - LIVER ABSCESS [None]
  - OFF LABEL USE [None]
  - NEOPLASM MALIGNANT [None]
  - MALAISE [None]
  - DECREASED APPETITE [None]
  - GENERAL PHYSICAL HEALTH DETERIORATION [None]
  - HEPATIC NEOPLASM MALIGNANT [None]
